FAERS Safety Report 20890380 (Version 2)
Quarter: 2022Q3

REPORT INFORMATION
  Report Type: Spontaneous
  Country: PL (occurrence: PL)
  Receive Date: 20220530
  Receipt Date: 20220930
  Transmission Date: 20221026
  Serious: Yes (Other)
  Sender: FDA-Public Use
  Company Number: PL-URPL-S3061/2018

PATIENT
  Age: 67 Year
  Sex: Female

DRUGS (2)
  1. GEMCITABINE [Suspect]
     Active Substance: GEMCITABINE
     Indication: Respiratory tract neoplasm
     Dosage: 2212 MILLIGRAM, UNK
     Route: 042
     Dates: start: 20180822
  2. CARBOPLATIN [Suspect]
     Active Substance: CARBOPLATIN
     Indication: Respiratory tract neoplasm
     Dosage: 971 MILLIGRAM, UNK
     Route: 042
     Dates: start: 20180822

REACTIONS (2)
  - Neutropenia [Unknown]
  - Thrombocytopenia [Unknown]

NARRATIVE: CASE EVENT DATE: 20180903
